FAERS Safety Report 11874932 (Version 2)
Quarter: 2015Q4

REPORT INFORMATION
  Report Type: Spontaneous
  Country: US (occurrence: US)
  Receive Date: 20151229
  Receipt Date: 20151230
  Transmission Date: 20160305
  Serious: Yes (Death, Hospitalization, Other)
  Sender: FDA-Public Use
  Company Number: US-009507513-1512USA013418

PATIENT
  Sex: Male

DRUGS (1)
  1. TEMODAR [Suspect]
     Active Substance: TEMOZOLOMIDE
     Indication: GLIOBLASTOMA
     Dosage: 320 MG, QD FOR DAYS 1-5 OF 28-DAY CYCLE
     Route: 048

REACTIONS (5)
  - Metabolic encephalopathy [Fatal]
  - Acute respiratory failure [Fatal]
  - Glioblastoma [Fatal]
  - Acute kidney injury [Fatal]
  - Hypercalcaemia [Fatal]

NARRATIVE: CASE EVENT DATE: 2015
